FAERS Safety Report 8623159-9 (Version None)
Quarter: 2012Q3

REPORT INFORMATION
  Report Type: 
  Country: None (occurrence: None)
  Receive Date: 20120827
  Receipt Date: 20120817
  Transmission Date: 20120928
  Serious: Yes (Life-Threatening, Hospitalization)
  Sender: FDA-Public Use
  Company Number: US-GE HEALTHCARE MEDICAL DIAGNOSTICS-MYVW-PR-1208S-0032

PATIENT
  Age: 80 Year
  Sex: Female

DRUGS (4)
  1. MYOVIEW [Suspect]
     Indication: DIAGNOSTIC PROCEDURE
  2. LEXISCAN [Suspect]
     Indication: PRODUCT USED FOR UNKNOWN INDICATION
     Route: 065
     Dates: start: 20120702, end: 20120702
  3. MYOVIEW [Suspect]
     Indication: PRODUCT USED FOR UNKNOWN INDICATION
     Route: 065
     Dates: start: 20120702, end: 20120702
  4. TECHNETIUM 99M GENERATOR [Concomitant]

REACTIONS (11)
  - RESPIRATORY ARREST [None]
  - MICTURITION URGENCY [None]
  - SWOLLEN TONGUE [None]
  - BRADYCARDIA [None]
  - LIP SWELLING [None]
  - PHARYNGEAL OEDEMA [None]
  - BLOOD PRESSURE DECREASED [None]
  - TRYPTASE [None]
  - BURNING SENSATION [None]
  - HYPOXIA [None]
  - ANGIOEDEMA [None]
